FAERS Safety Report 7943379-6 (Version None)
Quarter: 2011Q4

REPORT INFORMATION
  Report Type: 
  Country: None (occurrence: None)
  Receive Date: 20111128
  Receipt Date: 20110714
  Transmission Date: 20120403
  Serious: No
  Sender: FDA-Public Use
  Company Number: US-TYCO HEALTHCARE/MALLINCKRODT-T201101441

PATIENT
  Age: 71 Year
  Sex: Male
  Weight: 138.32 kg

DRUGS (6)
  1. CLARITIN                           /00917501/ [Concomitant]
  2. OMEGA-3                            /00931501/ [Concomitant]
  3. TECHNETIUM TC 99M SESTAMIBI [Suspect]
     Indication: CARDIAC STRESS TEST
     Dosage: UNK UNK, SINGLE
     Route: 042
     Dates: start: 20110712, end: 20110712
  4. TRIAMTEREN HCT [Concomitant]
  5. ULTRA-TECHNEKOW [Suspect]
     Indication: CARDIAC STRESS TEST
     Dosage: 27.1 MCI, SINGLE
     Route: 042
     Dates: start: 20110712, end: 20110712
  6. VITAMINS                           /90003601/ [Concomitant]

REACTIONS (3)
  - MALAISE [None]
  - RASH MACULAR [None]
  - FLUSHING [None]
